FAERS Safety Report 8712631 (Version 2)
Quarter: 2012Q4

REPORT INFORMATION
  Report Type: 
  Country: KY (occurrence: US)
  Receive Date: 20120808
  Receipt Date: 20121203
  Transmission Date: 20130627
  Serious: Yes (Hospitalization, Disabling)
  Sender: FDA-Public Use
  Company Number: KY-BAYER-2012-077715

PATIENT
  Age: 27 Year
  Sex: Female

DRUGS (3)
  1. YAZ [Suspect]
     Dosage: UNK
     Dates: start: 200210
  2. YASMIN [Suspect]
  3. OCELLA [Suspect]

REACTIONS (10)
  - Pulmonary embolism [None]
  - Pulmonary embolism [None]
  - Pulmonary embolism [None]
  - Pulmonary embolism [None]
  - Deep vein thrombosis [None]
  - Injury [None]
  - Pain [None]
  - Deformity [None]
  - Anxiety [None]
  - Anhedonia [None]
